FAERS Safety Report 6549828-2 (Version None)
Quarter: 2010Q1

REPORT INFORMATION
  Report Type: 
  Country: None (occurrence: None)
  Receive Date: 20100125
  Receipt Date: 20100113
  Transmission Date: 20100710
  Serious: Yes (Life-Threatening)
  Sender: FDA-Public Use
  Company Number: RU-WYE-H13087410

PATIENT
  Age: 58 Year
  Sex: Male

DRUGS (6)
  1. CORDARONE [Suspect]
     Indication: VENTRICULAR ARRHYTHMIA
     Dosage: POTENTIAL COUNTERFEIT PRODUCT, 200 MG DAILY
     Route: 048
     Dates: start: 20091212, end: 20091220
  2. CORDARONE [Suspect]
     Indication: VENTRICULAR EXTRASYSTOLES
     Dosage: UNSPECIFIED DOSE OF A NEW PACKAGE OF AMIODARONE
     Route: 048
     Dates: start: 20091229
  3. CORDARONE [Suspect]
     Indication: TACHYCARDIA
  4. ATORVASTATIN CALCIUM [Concomitant]
     Dosage: UNSPECIFIED
  5. LISINOPRIL [Concomitant]
     Dosage: UNSPECIFIED
  6. ISOSORBIDE DINITRATE [Concomitant]
     Dosage: UNSPECIFIED

REACTIONS (4)
  - ASTHENIA [None]
  - DRUG INEFFECTIVE [None]
  - PRODUCT COUNTERFEIT [None]
  - VENTRICULAR EXTRASYSTOLES [None]
